FAERS Safety Report 25473679 (Version 2)
Quarter: 2025Q3

REPORT INFORMATION
  Report Type: Spontaneous
  Country: EU (occurrence: EU)
  Receive Date: 20250624
  Receipt Date: 20250826
  Transmission Date: 20251020
  Serious: Yes (Hospitalization)
  Sender: PFIZER
  Company Number: None

PATIENT
  Age: 28 Year
  Sex: Male
  Weight: 61.7 kg

DRUGS (2)
  1. PIPERACILLIN SODIUM\TAZOBACTAM SODIUM [Suspect]
     Active Substance: PIPERACILLIN SODIUM\TAZOBACTAM SODIUM
     Indication: Laparotomy
     Dosage: 12 G, 1X/DAY
     Route: 042
     Dates: start: 20250522, end: 20250609
  2. PIPERACILLIN SODIUM\TAZOBACTAM SODIUM [Suspect]
     Active Substance: PIPERACILLIN SODIUM\TAZOBACTAM SODIUM
     Indication: Pyrexia

REACTIONS (4)
  - Neutropenia [Not Recovered/Not Resolved]
  - Leukopenia [Not Recovered/Not Resolved]
  - Agranulocytosis [Recovered/Resolved]
  - Off label use [Unknown]

NARRATIVE: CASE EVENT DATE: 20250609
